FAERS Safety Report 5405231-X (Version None)
Quarter: 2007Q3

REPORT INFORMATION
  Report Type: 
  Country: None (occurrence: None)
  Receive Date: 20070803
  Receipt Date: 20070724
  Transmission Date: 20080115
  Serious: Yes (Other)
  Sender: FDA-Public Use
  Company Number: IE-ROCHE-505861

PATIENT
  Age: 46 Year
  Sex: Male
  Weight: 81.6 kg

DRUGS (2)
  1. PEGASYS [Suspect]
     Indication: HEPATITIS C
     Route: 058
     Dates: start: 20070416
  2. COPEGUS [Suspect]
     Indication: HEPATITIS C
     Route: 048
     Dates: start: 20070416

REACTIONS (3)
  - ADENOMA BENIGN [None]
  - DYSPHONIA [None]
  - PHARYNGOLARYNGEAL PAIN [None]
